FAERS Safety Report 9117306 (Version 2)
Quarter: 2013Q2

REPORT INFORMATION
  Report Type: Spontaneous
  Country: US (occurrence: US)
  Receive Date: 20130225
  Receipt Date: 20130422
  Transmission Date: 20140414
  Serious: No
  Sender: FDA-Public Use
  Company Number: US-009507513-1302USA008857

PATIENT
  Age: 17 Year
  Sex: Female
  Weight: 79.37 kg

DRUGS (1)
  1. IMPLANON [Suspect]
     Indication: CONTRACEPTION
     Dosage: 68 MG, UNK, 1 STANDARD DOSE OF 1
     Route: 059
     Dates: start: 20121002, end: 20130221

REACTIONS (4)
  - Injury [Unknown]
  - Limb discomfort [Not Recovered/Not Resolved]
  - Device kink [Recovered/Resolved]
  - Device dislocation [Recovered/Resolved]
